FAERS Safety Report 10352071 (Version 1)
Quarter: 2014Q3

REPORT INFORMATION
  Report Type: Spontaneous
  Country: US (occurrence: US)
  Receive Date: 20140730
  Receipt Date: 20140730
  Transmission Date: 20150326
  Serious: No
  Sender: FDA-Public Use
  Company Number: US-ABBVIE-13P-163-1131860-00

PATIENT
  Age: 44 Year
  Sex: Female
  Weight: 81.72 kg

DRUGS (5)
  1. METFORMIN [Concomitant]
     Active Substance: METFORMIN HYDROCHLORIDE
     Indication: POLYCYSTIC OVARIES
  2. SYNTHROID [Suspect]
     Active Substance: LEVOTHYROXINE SODIUM
     Dates: start: 201307
  3. SYNTHROID [Suspect]
     Active Substance: LEVOTHYROXINE SODIUM
     Indication: HYPOTHYROIDISM
     Dosage: 1 TAB DAILY FOR 1 DAY, ALTERNATE W/ 88 MCG FOR NEXT 2 DAYS
     Dates: end: 201307
  4. LEVOTHYROXINE [Suspect]
     Active Substance: LEVOTHYROXINE
     Indication: HYPOTHYROIDISM
     Dosage: 1 DAI1Y FOR 1 DAY ALTERNATING W/ 88MCG DAILY FOR NEXT 2 DAYS
     Dates: start: 201306, end: 201307
  5. SYNTHROID [Suspect]
     Active Substance: LEVOTHYROXINE SODIUM
     Indication: THYROID HORMONE REPLACEMENT THERAPY
     Dosage: 1 TAB; ON 2 DAYS AND OFF 1 DAY
     Dates: end: 201307

REACTIONS (7)
  - Cough [Recovered/Resolved]
  - Dizziness [Recovered/Resolved]
  - Hyperthyroidism [Not Recovered/Not Resolved]
  - Bronchitis [Recovered/Resolved]
  - Weight decreased [Not Recovered/Not Resolved]
  - Insomnia [Not Recovered/Not Resolved]
  - Vomiting [Recovered/Resolved]

NARRATIVE: CASE EVENT DATE: 201306
